FAERS Safety Report 4948127-X (Version None)
Quarter: 2006Q1

REPORT INFORMATION
  Report Type: 
  Country: None (occurrence: None)
  Receive Date: 20060320
  Receipt Date: 20060314
  Transmission Date: 20060701
  Serious: Yes (Hospitalization, Disabling)
  Sender: FDA-Public Use
  Company Number: DE-SANOFI-SYNTHELABO-F04200600046

PATIENT
  Sex: Female

DRUGS (3)
  1. ELOXATIN [Suspect]
     Indication: RECTAL CANCER
     Route: 041
     Dates: start: 20060307, end: 20060307
  2. CAPECITABINE [Concomitant]
     Indication: RECTAL CANCER
     Route: 048
     Dates: start: 20060228, end: 20060310
  3. CETUXIMAB [Concomitant]
     Indication: RECTAL CANCER
     Route: 041
     Dates: start: 20060307, end: 20060307

REACTIONS (2)
  - CEREBRAL ISCHAEMIA [None]
  - FACIAL PARESIS [None]
